FAERS Safety Report 5676746-4 (Version None)
Quarter: 2008Q1

REPORT INFORMATION
  Report Type: 
  Country: None (occurrence: None)
  Receive Date: 20080318
  Receipt Date: 20080303
  Transmission Date: 20080703
  Serious: Yes (Life-Threatening, Hospitalization)
  Sender: FDA-Public Use
  Company Number: 100#08#2008-00977

PATIENT
  Age: 34 Year
  Sex: Female

DRUGS (8)
  1. LEFLUNOMIDE [Suspect]
     Indication: JUVENILE ARTHRITIS
     Dosage: 20 MG/DAY
  2. CHOLESTYRAMINE [Suspect]
     Indication: THERAPEUTIC PROCEDURE
  3. ACETAMINOPHEN W/ PROPOXYPHENE HCL [Concomitant]
  4. PREDNISONE TAB [Concomitant]
  5. NICARDECREASEINE (NICARDECREASEINE) [Concomitant]
  6. CANDESARTAN CILEXETIL [Concomitant]
  7. CALCIUM CARBONATE (CALCIUM CARBONATE) [Concomitant]
  8. CHOLECALCIFEROL (CHOLECALCIFEROL) [Concomitant]

REACTIONS (9)
  - BLOOD FIBRINOGEN DECREASED [None]
  - HEPATIC FIBROSIS [None]
  - HEPATIC NECROSIS [None]
  - HEPATITIS FULMINANT [None]
  - HEPATOMEGALY [None]
  - HEPATOTOXICITY [None]
  - PROTHROMBIN LEVEL ABNORMAL [None]
  - SERUM FERRITIN INCREASED [None]
  - VITAMIN K DEFICIENCY [None]
